FAERS Safety Report 21905311 (Version 1)
Quarter: 2023Q1

REPORT INFORMATION
  Report Type: Spontaneous
  Country: DE (occurrence: None)
  Receive Date: 20230124
  Receipt Date: 20230124
  Transmission Date: 20230418
  Serious: Yes (Hospitalization)
  Sender: FDA-Public Use
  Company Number: 2020SF06434

PATIENT
  Age: 405 Month
  Sex: Female
  Weight: 72 kg

DRUGS (1)
  1. FASENRA [Suspect]
     Active Substance: BENRALIZUMAB
     Indication: Asthma
     Dosage: TWO WEEKS LATER30.0MG UNKNOWN
     Route: 058
     Dates: start: 20191120, end: 2022

REACTIONS (3)
  - Abdominal pain [Not Recovered/Not Resolved]
  - Gastritis [Unknown]
  - Helminthic infection [Recovered/Resolved]

NARRATIVE: CASE EVENT DATE: 20200801
